FAERS Safety Report 22709599 (Version 3)
Quarter: 2025Q4

REPORT INFORMATION
  Report Type: Report from Study
  Country: CA (occurrence: CA)
  Receive Date: 20230717
  Receipt Date: 20251211
  Transmission Date: 20260117
  Serious: Yes (Hospitalization)
  Sender: BIOGEN
  Company Number: CA-BIOGEN-2023BI01216081

PATIENT
  Age: 61 Year
  Sex: Female

DRUGS (1)
  1. TECFIDERA [Suspect]
     Active Substance: DIMETHYL FUMARATE
     Indication: Multiple sclerosis
     Dosage: MAINTENANCE DOSE
     Dates: start: 20160725, end: 20251202

REACTIONS (3)
  - Pain in extremity [Recovered/Resolved]
  - Loss of control of legs [Recovered/Resolved]
  - Musculoskeletal stiffness [Recovered/Resolved]
